FAERS Safety Report 6822419-1 (Version None)
Quarter: 2010Q3

REPORT INFORMATION
  Report Type: 
  Country: None (occurrence: None)
  Receive Date: 20100708
  Receipt Date: 20100705
  Transmission Date: 20110219
  Serious: Yes (Death)
  Sender: FDA-Public Use
  Company Number: PHHY2010NL43826

PATIENT
  Age: 24 Year
  Sex: Male

DRUGS (1)
  1. LEPONEX [Suspect]
     Dosage: UNK

REACTIONS (1)
  - CARDIAC ARREST [None]
